FAERS Safety Report 17567148 (Version 5)
Quarter: 2024Q4

REPORT INFORMATION
  Report Type: Spontaneous
  Country: IT (occurrence: IT)
  Receive Date: 20200320
  Receipt Date: 20241110
  Transmission Date: 20250114
  Serious: Yes (Death, Life-Threatening, Hospitalization, Other)
  Sender: NOVARTIS
  Company Number: None

PATIENT
  Age: 52 Year
  Sex: Female

DRUGS (7)
  1. CYCLOSPORINE [Suspect]
     Active Substance: CYCLOSPORINE
     Indication: Liver transplant
     Dosage: 8 MG/KG, QD
     Route: 065
  2. CYCLOSPORINE [Suspect]
     Active Substance: CYCLOSPORINE
     Indication: Immunosuppressant drug therapy
  3. MYCOPHENOLATE MOFETIL [Suspect]
     Active Substance: MYCOPHENOLATE MOFETIL
     Indication: Liver transplant
     Dosage: UNK
     Route: 065
  4. MYCOPHENOLATE MOFETIL [Suspect]
     Active Substance: MYCOPHENOLATE MOFETIL
     Indication: Immunosuppressant drug therapy
     Route: 065
  5. PREDNISONE [Suspect]
     Active Substance: PREDNISONE
     Indication: Liver transplant
     Dosage: UNK
     Route: 065
  6. PREDNISONE [Suspect]
     Active Substance: PREDNISONE
     Indication: Immunosuppressant drug therapy
  7. PREDNISONE [Suspect]
     Active Substance: PREDNISONE
     Indication: Immunosuppressant drug therapy

REACTIONS (15)
  - Unresponsive to stimuli [Fatal]
  - Psychomotor hyperactivity [Fatal]
  - Posterior reversible encephalopathy syndrome [Fatal]
  - Toxicity to various agents [Fatal]
  - Depressed level of consciousness [Fatal]
  - Eye movement disorder [Fatal]
  - Muscle disorder [Fatal]
  - Confusional state [Fatal]
  - Altered state of consciousness [Fatal]
  - Neurotoxicity [Fatal]
  - Encephalopathy [Recovering/Resolving]
  - Nervous system disorder [Unknown]
  - Locked-in syndrome [Recovering/Resolving]
  - Brain oedema [Recovered/Resolved]
  - Product use in unapproved indication [Unknown]
